FAERS Safety Report 25752106 (Version 1)
Quarter: 2025Q3

REPORT INFORMATION
  Report Type: Spontaneous
  Country: CN (occurrence: CN)
  Receive Date: 20250902
  Receipt Date: 20250902
  Transmission Date: 20251021
  Serious: Yes (Hospitalization, Other)
  Sender: AMERICAN REGENT
  Company Number: CN-AMERICAN REGENT INC-2025003324

PATIENT
  Age: 34 Year
  Sex: Female

DRUGS (3)
  1. VENOFER [Suspect]
     Active Substance: IRON SUCROSE
     Indication: Mineral supplementation
     Dates: start: 20250812, end: 20250821
  2. VENOFER [Suspect]
     Active Substance: IRON SUCROSE
     Indication: Anaemia of pregnancy
  3. SODIUM CHLORIDE [Concomitant]
     Active Substance: SODIUM CHLORIDE
     Indication: Product used for unknown indication
     Route: 065
     Dates: start: 20250812, end: 20250821

REACTIONS (3)
  - Hepatic function abnormal [Recovering/Resolving]
  - Maternal exposure during pregnancy [Unknown]
  - Overdose [Unknown]

NARRATIVE: CASE EVENT DATE: 20250812
